FAERS Safety Report 9735056 (Version 5)
Quarter: 2014Q4

REPORT INFORMATION
  Report Type: Report from Study
  Country: CA (occurrence: CA)
  Receive Date: 20131206
  Receipt Date: 20141103
  Transmission Date: 20150529
  Serious: Yes (Other)
  Sender: FDA-Public Use
  Company Number: CA-ROCHE-1264591

PATIENT
  Age: 70 Year
  Sex: Male

DRUGS (10)
  1. CELEBREX [Concomitant]
     Active Substance: CELECOXIB
  2. ACTEMRA [Suspect]
     Active Substance: TOCILIZUMAB
     Route: 042
     Dates: start: 20131227, end: 20141027
  3. BENADRYL [Concomitant]
     Active Substance: DIPHENHYDRAMINE HYDROCHLORIDE
     Route: 048
     Dates: start: 20121012, end: 20130522
  4. RITUXAN [Suspect]
     Active Substance: RITUXIMAB
     Indication: RHEUMATOID ARTHRITIS
     Dosage: DAY 1 AND DAY 15
     Route: 042
     Dates: start: 20121012, end: 20130522
  5. ACTEMRA [Suspect]
     Active Substance: TOCILIZUMAB
     Indication: RHEUMATOID ARTHRITIS
     Route: 042
     Dates: start: 20130903
  6. FOLIC ACID. [Concomitant]
     Active Substance: FOLIC ACID
  7. RABEPRAZOLE [Concomitant]
     Active Substance: RABEPRAZOLE
  8. METHOTREXATE [Concomitant]
     Active Substance: METHOTREXATE
     Route: 048
  9. TYLENOL [Concomitant]
     Active Substance: ACETAMINOPHEN
     Route: 048
     Dates: start: 20121012, end: 20130522
  10. METHYLPREDNISOLONE. [Concomitant]
     Active Substance: METHYLPREDNISOLONE
     Route: 042
     Dates: start: 20121012, end: 20130522

REACTIONS (11)
  - Drug ineffective [Unknown]
  - Blood pressure increased [Unknown]
  - Temperature intolerance [Unknown]
  - Headache [Unknown]
  - Paraesthesia [Unknown]
  - Back pain [Unknown]
  - Eye haemorrhage [Unknown]
  - Drug effect decreased [Unknown]
  - Night sweats [Unknown]
  - Arthralgia [Unknown]
  - Infusion related reaction [Recovered/Resolved]

NARRATIVE: CASE EVENT DATE: 20130923
